FAERS Safety Report 8847251 (Version 2)
Quarter: 2012Q4

REPORT INFORMATION
  Report Type: 
  Country: DE (occurrence: DE)
  Receive Date: 20121018
  Receipt Date: 20121030
  Transmission Date: 20130627
  Serious: Yes (Other)
  Sender: FDA-Public Use
  Company Number: PHHY2012DE092360

PATIENT
  Age: 73 Year
  Sex: Male

DRUGS (1)
  1. FORMOTEROL [Suspect]
     Indication: DYSPNOEA
     Dosage: 12 ug, BID

REACTIONS (1)
  - Micturition urgency [Unknown]
